FAERS Safety Report 16886934 (Version 2)
Quarter: 2019Q4

REPORT INFORMATION
  Report Type: Report from Study
  Country: CA (occurrence: CA)
  Receive Date: 20191004
  Receipt Date: 20191007
  Transmission Date: 20200122
  Serious: Yes (Other)
  Sender: FDA-Public Use
  Company Number: CA-GLAXOSMITHKLINE-CA2019AMR174247

PATIENT
  Sex: Female

DRUGS (1)
  1. MEPOLIZUMAB [Suspect]
     Active Substance: MEPOLIZUMAB
     Indication: ASTHMA
     Dosage: 100 MG, Z (MONTHLY)
     Route: 042
     Dates: start: 20170503

REACTIONS (5)
  - Increased viscosity of bronchial secretion [Unknown]
  - Lower respiratory tract infection [Unknown]
  - Pulmonary congestion [Recovering/Resolving]
  - Malaise [Unknown]
  - Sputum discoloured [Recovered/Resolved]
